FAERS Safety Report 24995661 (Version 2)
Quarter: 2025Q1

REPORT INFORMATION
  Report Type: Report from Study
  Country: KR (occurrence: KR)
  Receive Date: 20250221
  Receipt Date: 20250312
  Transmission Date: 20250409
  Serious: Yes (Death)
  Sender: SANOFI AVENTIS
  Company Number: KR-SA-2025SA051649

PATIENT
  Age: 3 Year
  Sex: Male
  Weight: 16 kg

DRUGS (1)
  1. IMIGLUCERASE [Suspect]
     Active Substance: IMIGLUCERASE
     Indication: Gaucher^s disease
     Route: 065
     Dates: start: 20230228

REACTIONS (2)
  - Gaucher^s disease [Fatal]
  - Condition aggravated [Fatal]
